FAERS Safety Report 9876481 (Version 1)
Quarter: 2014Q1

REPORT INFORMATION
  Report Type: Spontaneous
  Country: US (occurrence: None)
  Receive Date: 20140205
  Receipt Date: 20140205
  Transmission Date: 20141002
  Serious: Yes (Hospitalization)
  Sender: FDA-Public Use
  Company Number: None

PATIENT
  Age: 56 Year
  Sex: Male
  Weight: 147.4 kg

DRUGS (2)
  1. ABIRATERONE ACETATE [Suspect]
     Dates: end: 20130917
  2. PREDNISONE [Suspect]
     Dates: end: 20130917

REACTIONS (1)
  - Small intestinal obstruction [None]
